FAERS Safety Report 11788957 (Version 1)
Quarter: 2015Q4

REPORT INFORMATION
  Report Type: Spontaneous
  Country: US (occurrence: None)
  Receive Date: 20151130
  Receipt Date: 20151130
  Transmission Date: 20160305
  Serious: Yes (Disabling, Other)
  Sender: FDA-Public Use
  Company Number: None

PATIENT
  Age: 75 Year
  Sex: Male
  Weight: 82.1 kg

DRUGS (3)
  1. TAMSULOSEN HCL [Concomitant]
  2. FLUTICASONE PROPIONATE 50MG ROXANE LABORATORIES [Suspect]
     Active Substance: FLUTICASONE PROPIONATE
     Indication: NASAL CONGESTION
     Dosage: 4 SPRAYS PER DAY
     Route: 045
     Dates: start: 20151021, end: 20151123
  3. ASPIRIN 81MG [Concomitant]
     Active Substance: ASPIRIN

REACTIONS (1)
  - Herpes zoster [None]

NARRATIVE: CASE EVENT DATE: 20151122
